FAERS Safety Report 5085971-5 (Version None)
Quarter: 2006Q3

REPORT INFORMATION
  Report Type: 
  Country: None (occurrence: None)
  Receive Date: 20060817
  Receipt Date: 20060807
  Transmission Date: 20061208
  Serious: Yes (Hospitalization)
  Sender: FDA-Public Use
  Company Number: 222667

PATIENT
  Age: 78 Year
  Sex: Male
  Weight: 90.2 kg

DRUGS (10)
  1. MABTHERA (RITUXIMAB) CONC FOR SOLUTION FOR INFUSION [Suspect]
     Indication: B-CELL LYMPHOMA
     Dosage: 769 MG, INTRAVENOUS
     Route: 042
     Dates: start: 20060120, end: 20060216
  2. CYCLOPHOSPHAMIDE [Suspect]
     Indication: B-CELL LYMPHOMA
     Dosage: 1500 MG, INTRAVENOUS
     Route: 042
     Dates: start: 20060120
  3. VINCRISTINE [Suspect]
     Indication: B-CELL LYMPHOMA
     Dosage: 2 MG, INTRAVENOUS
     Route: 042
     Dates: start: 20060120
  4. PREDNISOLONE [Suspect]
     Indication: B-CELL LYMPHOMA
     Dosage: 80 MG, ORAL
     Route: 048
     Dates: start: 20060121
  5. NEULASTA [Suspect]
     Indication: B-CELL LYMPHOMA
     Dosage: 6 MG, SUBCUTANEOUS
     Route: 058
     Dates: start: 20060209
  6. ALLOPURINOL [Concomitant]
  7. AVAPRO [Concomitant]
  8. MAXOLON [Concomitant]
  9. SODIUM BICARB MOUTHWASH (SODIUM BICARBONATE) [Concomitant]
  10. ZOLTUM (OMEPRAZOLE) [Concomitant]

REACTIONS (7)
  - BLOOD SODIUM DECREASED [None]
  - CELLULITIS [None]
  - FOLLICULITIS [None]
  - LYMPHANGITIS [None]
  - NAUSEA [None]
  - NEUTROPENIA [None]
  - PAIN [None]
